FAERS Safety Report 6284153-9 (Version None)
Quarter: 2009Q3

REPORT INFORMATION
  Report Type: 
  Country: None (occurrence: None)
  Receive Date: 20090723
  Receipt Date: 20090709
  Transmission Date: 20100115
  Serious: Yes (Other)
  Sender: FDA-Public Use
  Company Number: 8048859

PATIENT
  Age: 20 Year
  Sex: Female
  Weight: 56.8 kg

DRUGS (2)
  1. XYZAL [Suspect]
     Indication: URTICARIA CHRONIC
     Dosage: 5 MG 1/D PO
     Route: 048
     Dates: start: 20070101, end: 20090707
  2. DIGOXIN [Concomitant]

REACTIONS (6)
  - CHEST PAIN [None]
  - HEAD INJURY [None]
  - HEART RATE IRREGULAR [None]
  - MITRAL VALVE PROLAPSE [None]
  - PRESYNCOPE [None]
  - SUPRAVENTRICULAR TACHYCARDIA [None]
